FAERS Safety Report 8845800 (Version 1)
Quarter: 2012Q4

REPORT INFORMATION
  Report Type: 
  Country: DE (occurrence: DE)
  Receive Date: 20121017
  Receipt Date: 20121017
  Transmission Date: 20130627
  Serious: Yes (Other)
  Sender: FDA-Public Use
  Company Number: DE-ROCHE-1004576

PATIENT
  Sex: Male
  Weight: 70 kg

DRUGS (1)
  1. ROCEPHIN [Suspect]
     Indication: SEPSIS
     Route: 065

REACTIONS (1)
  - Liver function test abnormal [Unknown]
